FAERS Safety Report 8615503-3 (Version None)
Quarter: 2012Q3

REPORT INFORMATION
  Report Type: 
  Country: None (occurrence: None)
  Receive Date: 20120823
  Receipt Date: 20120822
  Transmission Date: 20120928
  Serious: Yes (Other)
  Sender: FDA-Public Use
  Company Number: IE-BAYER-2012-086598

PATIENT
  Age: 81 Year
  Sex: Male

DRUGS (3)
  1. PREDNISOLONE [Concomitant]
     Indication: PNEUMONIA
  2. CIPROFLOXACIN HCL [Suspect]
     Indication: PNEUMONIA
     Dosage: 500 MG, BID
     Route: 048
     Dates: start: 20120804, end: 20120804
  3. PREDNISOLONE [Concomitant]
     Indication: CHRONIC OBSTRUCTIVE PULMONARY DISEASE
     Dosage: TAPERING DOSE
     Dates: start: 20120804, end: 20120809

REACTIONS (2)
  - MUSCLE SPASMS [None]
  - GRIP STRENGTH DECREASED [None]
